FAERS Safety Report 17409368 (Version 1)
Quarter: 2020Q1

REPORT INFORMATION
  Report Type: Spontaneous
  Country: DE (occurrence: DE)
  Receive Date: 20200212
  Receipt Date: 20200212
  Transmission Date: 20200409
  Serious: Yes (Other)
  Sender: FDA-Public Use
  Company Number: DE-BAYER-2020-017157

PATIENT
  Age: 24 Year
  Sex: Male
  Weight: 80 kg

DRUGS (1)
  1. CIPROFLOXACIN. [Suspect]
     Active Substance: CIPROFLOXACIN
     Indication: MIDDLE EAR INFLAMMATION
     Dosage: 500 MG, BID
     Route: 048
     Dates: start: 20150610, end: 20150624

REACTIONS (15)
  - Loss of consciousness [Unknown]
  - Tongue coated [Not Recovered/Not Resolved]
  - Constipation [Unknown]
  - Toxicity to various agents [Not Recovered/Not Resolved]
  - Dry mouth [Not Recovered/Not Resolved]
  - Diarrhoea [Unknown]
  - Cardiovascular disorder [Not Recovered/Not Resolved]
  - Gastrointestinal inflammation [Not Recovered/Not Resolved]
  - Dyspepsia [Recovering/Resolving]
  - Cardiac discomfort [Unknown]
  - Noninfective encephalitis [Not Recovered/Not Resolved]
  - Abdominal pain [Unknown]
  - Emotional distress [Not Recovered/Not Resolved]
  - Weight decreased [Unknown]
  - Performance status decreased [Not Recovered/Not Resolved]

NARRATIVE: CASE EVENT DATE: 20150801
